FAERS Safety Report 6398310-4 (Version None)
Quarter: 2009Q4

REPORT INFORMATION
  Report Type: 
  Country: None (occurrence: None)
  Receive Date: 20091013
  Receipt Date: 20091009
  Transmission Date: 20100525
  Serious: Yes (Hospitalization)
  Sender: FDA-Public Use
  Company Number: FR-WYE-G04582909

PATIENT
  Age: 33 Year
  Sex: Male

DRUGS (3)
  1. EFFEXOR [Suspect]
     Route: 048
     Dates: start: 20090101, end: 20090907
  2. EFFEXOR [Suspect]
     Route: 048
     Dates: start: 20090908, end: 20090928
  3. EFFEXOR [Suspect]
     Dosage: 37.5 MG STRENGTH; DOSE UNKNOWN
     Route: 048
     Dates: start: 20090929

REACTIONS (8)
  - BLOOD PRESSURE SYSTOLIC INCREASED [None]
  - CHEST DISCOMFORT [None]
  - CRYING [None]
  - DRUG WITHDRAWAL SYNDROME [None]
  - ELECTROCARDIOGRAM T WAVE INVERSION [None]
  - MALAISE [None]
  - PARAESTHESIA [None]
  - VERTIGO [None]
